FAERS Safety Report 24627443 (Version 1)
Quarter: 2024Q4

REPORT INFORMATION
  Report Type: Spontaneous
  Country: US (occurrence: US)
  Receive Date: 20241116
  Receipt Date: 20241116
  Transmission Date: 20250114
  Serious: No
  Sender: SANOFI AVENTIS
  Company Number: US-SA-2024SA331925

PATIENT
  Age: 64 Year
  Sex: Female

DRUGS (8)
  1. DUPIXENT [Suspect]
     Active Substance: DUPILUMAB
     Indication: Eosinophilic oesophagitis
     Dosage: 300 MG, QW
     Route: 058
     Dates: start: 20240811
  2. BIOTIN [Concomitant]
     Active Substance: BIOTIN
  3. CALCIUM CITRATE [Concomitant]
     Active Substance: CALCIUM CITRATE
  4. FISH OIL [Concomitant]
     Active Substance: FISH OIL
  5. FLONASE ALLERGY RELIEF [Concomitant]
     Active Substance: FLUTICASONE PROPIONATE
  6. MELATONIN [Concomitant]
     Active Substance: MELATONIN
  7. OMEPRAZOLE [Concomitant]
     Active Substance: OMEPRAZOLE
  8. SERTRALINE [Concomitant]
     Active Substance: SERTRALINE HYDROCHLORIDE

REACTIONS (1)
  - Impaired quality of life [Unknown]

NARRATIVE: CASE EVENT DATE: 20240101
